FAERS Safety Report 24078172 (Version 1)
Quarter: 2024Q3

REPORT INFORMATION
  Report Type: Spontaneous
  Country: IT (occurrence: IT)
  Receive Date: 20240711
  Receipt Date: 20240711
  Transmission Date: 20241016
  Serious: Yes (Other)
  Sender: ALKEM
  Company Number: IT-ALKEM LABORATORIES LIMITED-IT-ALKEM-2024-14802

PATIENT
  Age: 57 Year
  Sex: Male

DRUGS (4)
  1. TICAGRELOR [Suspect]
     Active Substance: TICAGRELOR
     Indication: Acute coronary syndrome
     Dosage: 90 MILLIGRAM, BID
     Route: 065
  2. TICAGRELOR [Suspect]
     Active Substance: TICAGRELOR
     Dosage: UNK (RESTARTED DOSE)
     Route: 065
  3. ASPIRIN [Suspect]
     Active Substance: ASPIRIN
     Indication: Acute coronary syndrome
     Dosage: 100 MILLIGRAM, QD
     Route: 065
  4. ASPIRIN [Suspect]
     Active Substance: ASPIRIN
     Dosage: UNK (RESTARTED DOSE)
     Route: 065

REACTIONS (2)
  - Splenic rupture [Recovered/Resolved]
  - Haemoperitoneum [Recovered/Resolved]
